FAERS Safety Report 10484145 (Version 1)
Quarter: 2014Q3

REPORT INFORMATION
  Report Type: Spontaneous
  Country: US (occurrence: None)
  Receive Date: 20140929
  Receipt Date: 20140929
  Transmission Date: 20150326
  Serious: Yes (Hospitalization, Disabling)
  Sender: FDA-Public Use
  Company Number: None

PATIENT
  Age: 49 Year
  Sex: Female
  Weight: 77.11 kg

DRUGS (1)
  1. CIPROFLOXACIN 500 MG TEVA USA [Suspect]
     Active Substance: CIPROFLOXACIN
     Indication: URINARY TRACT INFECTION
     Route: 048

REACTIONS (9)
  - Dizziness [None]
  - Balance disorder [None]
  - Dehydration [None]
  - Nausea [None]
  - Activities of daily living impaired [None]
  - Vertigo [None]
  - Gait disturbance [None]
  - Vomiting [None]
  - Muscular weakness [None]

NARRATIVE: CASE EVENT DATE: 20140921
